FAERS Safety Report 5034152-X (Version None)
Quarter: 2006Q2

REPORT INFORMATION
  Report Type: 
  Country: None (occurrence: None)
  Receive Date: 20060626
  Receipt Date: 20060615
  Transmission Date: 20061013
  Serious: Yes (Death, Hospitalization)
  Sender: FDA-Public Use
  Company Number: IT-JNJFOC-20060405982

PATIENT
  Sex: Male

DRUGS (2)
  1. LEVOXACIN [Suspect]
     Indication: LOWER RESPIRATORY TRACT INFECTION
     Route: 048
     Dates: start: 20060328, end: 20060330
  2. FLUIMUCIL [Concomitant]
     Route: 065

REACTIONS (2)
  - HEPATOCELLULAR DAMAGE [None]
  - RESPIRATORY FAILURE [None]
